FAERS Safety Report 6274672-3 (Version None)
Quarter: 2009Q3

REPORT INFORMATION
  Report Type: 
  Country: None (occurrence: None)
  Receive Date: 20090717
  Receipt Date: 20090702
  Transmission Date: 20100115
  Serious: Yes (Other)
  Sender: FDA-Public Use
  Company Number: IPS_01716_2009

PATIENT
  Sex: Female

DRUGS (3)
  1. APO-GO (APO-GO - APOMORPHINE HYDROCHLORIDE) (NOT SPECIFIED) [Suspect]
     Indication: PARKINSON'S DISEASE
     Dosage: (DF, FOR 4 DAYS SUBCUTANEOUS)
     Route: 058
     Dates: start: 20090625, end: 20090628
  2. APO-GO (APO-GO - APOMORPHINE HYDROCHLORIDE) (NOT SPECIFIED) [Suspect]
     Indication: PARKINSON'S DISEASE
     Dosage: (DF, FOR  UNKNOWN SUBCUTANEOUS), (2.5 MG PER HOUR FOR 0 WEEKS SUBCUTANEOUS)
     Route: 058
     Dates: start: 20090601, end: 20090701
  3. APO-GO (APO-GO - APOMORPHINE HYDROCHLORIDE) (NOT SPECIFIED) [Suspect]
     Indication: PARKINSON'S DISEASE
     Dosage: (4 MG PER HOUR FOR UNKNOWN [24 HOURS DAILY] SUBCUTANEOUS)
     Route: 058
     Dates: start: 20090701

REACTIONS (4)
  - PARKINSON'S DISEASE [None]
  - RESPIRATORY ARREST [None]
  - SEPSIS [None]
  - URINARY TRACT INFECTION [None]
